FAERS Safety Report 8800264 (Version 2)
Quarter: 2015Q2

REPORT INFORMATION
  Report Type: Report from Study
  Country: US (occurrence: US)
  Receive Date: 20120921
  Receipt Date: 20150406
  Transmission Date: 20150821
  Serious: Yes (Death)
  Sender: FDA-Public Use
  Company Number: US-ROCHE-1131220

PATIENT
  Sex: Female

DRUGS (20)
  1. AVASTIN [Suspect]
     Active Substance: BEVACIZUMAB
     Route: 042
  2. OXALIPLATIN. [Concomitant]
     Active Substance: OXALIPLATIN
     Route: 065
  3. 5-FU [Concomitant]
     Active Substance: FLUOROURACIL
     Dosage: PUMP
     Route: 065
  4. AVASTIN [Suspect]
     Active Substance: BEVACIZUMAB
     Route: 042
  5. XELODA [Suspect]
     Active Substance: CAPECITABINE
     Indication: COLON CANCER
     Route: 048
  6. AVASTIN [Suspect]
     Active Substance: BEVACIZUMAB
     Indication: COLON CANCER
     Route: 042
     Dates: start: 20100412
  7. CAMPTOSAR [Concomitant]
     Active Substance: IRINOTECAN HYDROCHLORIDE
     Route: 065
  8. LEUCOVORIN [Concomitant]
     Active Substance: LEUCOVORIN
     Route: 065
  9. 5-FU [Concomitant]
     Active Substance: FLUOROURACIL
     Route: 065
  10. 5-FU [Concomitant]
     Active Substance: FLUOROURACIL
     Dosage: PUSH
     Route: 065
  11. 5-FU [Concomitant]
     Active Substance: FLUOROURACIL
     Route: 065
  12. 5-FU [Concomitant]
     Active Substance: FLUOROURACIL
     Route: 065
  13. ZOFRAN [Concomitant]
     Active Substance: ONDANSETRON HYDROCHLORIDE
     Route: 042
  14. DEXAMETHASONE. [Concomitant]
     Active Substance: DEXAMETHASONE
     Route: 065
  15. HEPARIN [Concomitant]
     Active Substance: HEPARIN SODIUM
     Route: 042
  16. DECADRON [Concomitant]
     Active Substance: DEXAMETHASONE
     Route: 042
  17. DEXAMETHASONE. [Concomitant]
     Active Substance: DEXAMETHASONE
     Route: 042
  18. NEUPOGEN [Concomitant]
     Active Substance: FILGRASTIM
     Route: 065
  19. ATROPINE [Concomitant]
     Active Substance: ATROPINE
     Route: 065
  20. 5-FU [Concomitant]
     Active Substance: FLUOROURACIL
     Dosage: PUSH
     Route: 065

REACTIONS (3)
  - Nausea [Unknown]
  - Death [Fatal]
  - Retching [Unknown]
